FAERS Safety Report 25380102 (Version 5)
Quarter: 2025Q4

REPORT INFORMATION
  Report Type: Spontaneous
  Country: US (occurrence: US)
  Receive Date: 20250530
  Receipt Date: 20251103
  Transmission Date: 20260118
  Serious: Yes (Other)
  Sender: APELLIS PHARMACEUTICALS
  Company Number: US-APELLIS-2025-APL-0001162

PATIENT

DRUGS (11)
  1. SYFOVRE [Suspect]
     Active Substance: PEGCETACOPLAN
     Indication: Product used for unknown indication
     Dosage: OS
     Dates: start: 20250506
  2. MINERALS\VITAMINS [Concomitant]
     Active Substance: MINERALS\VITAMINS
     Indication: Product used for unknown indication
     Dosage: 200 MCG-15 MCG- 5 MG-1 MG CAP, TAKE BY MOUTH
     Route: 048
  3. OCUVITE [Concomitant]
     Active Substance: VITAMINS
     Indication: Product used for unknown indication
     Route: 048
  4. LIPITOR [Concomitant]
     Active Substance: ATORVASTATIN CALCIUM
     Indication: Product used for unknown indication
     Dosage: 20 MG TABLET, TAKE 1 TABLET BY MOUTH ONCE DAILY.
     Route: 048
  5. VITAMIN D3 [Concomitant]
     Active Substance: CHOLECALCIFEROL
     Indication: Product used for unknown indication
     Dosage: 125 MCG (5,000 UNIT) CAP, TAKE 1 CAPSULE BY MOUTH ONCE DAILY.
  6. APPLE CIDER VINEGAR [Concomitant]
     Active Substance: APPLE CIDER VINEGAR
     Indication: Product used for unknown indication
     Route: 048
  7. MINERALS\VITAMINS [Concomitant]
     Active Substance: MINERALS\VITAMINS
     Indication: Product used for unknown indication
     Route: 048
  8. ECOTRIN [Concomitant]
     Active Substance: ASPIRIN
     Indication: Product used for unknown indication
     Dosage: 81 MG EC TABLET TAKE 1 TABLET BY MOUTH ONCE DAILY.
     Route: 048
  9. BRIMONIDINE TARTRATE [Concomitant]
     Active Substance: BRIMONIDINE TARTRATE
     Indication: Product used for unknown indication
     Dosage: USE 1 DROP IN EYES TWO TIMES A DAY.
     Route: 047
     Dates: start: 20250520
  10. CYCLOGYL [Concomitant]
     Active Substance: CYCLOPENTOLATE HYDROCHLORIDE
     Indication: Product used for unknown indication
     Dosage: USE 1 DROP IN THE LEFT EYE ONCE DAILY.
     Route: 047
  11. MINERALS\VITAMINS [Concomitant]
     Active Substance: MINERALS\VITAMINS

REACTIONS (8)
  - Retinal vasculitis [Unknown]
  - Uveitis [Unknown]
  - Retinal vascular occlusion [Unknown]
  - Intraocular pressure increased [Unknown]
  - Visual acuity reduced [Recovering/Resolving]
  - Dry age-related macular degeneration [Unknown]
  - Wheezing [Unknown]
  - Cough [Unknown]
